FAERS Safety Report 23754972 (Version 1)
Quarter: 2024Q2

REPORT INFORMATION
  Report Type: Spontaneous
  Country: FR (occurrence: FR)
  Receive Date: 20240418
  Receipt Date: 20240418
  Transmission Date: 20240716
  Serious: Yes (Other)
  Sender: FDA-Public Use
  Company Number: FR-AFSSAPS-NT2024000326

PATIENT
  Age: 56 Year
  Sex: Male
  Weight: 55.6 kg

DRUGS (1)
  1. METRONIDAZOLE [Suspect]
     Active Substance: METRONIDAZOLE
     Indication: Device related infection
     Dosage: 1500 MILLIGRAM, ONCE A DAY ( 500 MG X3/DAY)
     Route: 048
     Dates: start: 20231219, end: 20240118

REACTIONS (1)
  - Neurotoxicity [Recovered/Resolved]

NARRATIVE: CASE EVENT DATE: 20240109
